FAERS Safety Report 6064126-1 (Version None)
Quarter: 2009Q1

REPORT INFORMATION
  Report Type: 
  Country: None (occurrence: None)
  Receive Date: 20090204
  Receipt Date: 20090129
  Transmission Date: 20090719
  Serious: Yes (Hospitalization, Other)
  Sender: FDA-Public Use
  Company Number: US-BAYER-200828373NA

PATIENT
  Age: 28 Year
  Sex: Female
  Weight: 132 kg

DRUGS (1)
  1. MIRENA [Suspect]
     Indication: CONTRACEPTION
     Route: 015
     Dates: start: 20080313, end: 20080621

REACTIONS (5)
  - ABDOMINAL PAIN LOWER [None]
  - INTRA-UTERINE CONTRACEPTIVE DEVICE EXPELLED [None]
  - OVARIAN MASS [None]
  - UTERINE MASS [None]
  - VAGINAL HAEMORRHAGE [None]
